FAERS Safety Report 4388677-0 (Version None)
Quarter: 2004Q2

REPORT INFORMATION
  Report Type: 
  Country: None (occurrence: None)
  Receive Date: 20040624
  Receipt Date: 20040611
  Transmission Date: 20050107
  Serious: Yes (Hospitalization)
  Sender: FDA-Public Use
  Company Number: 2004-BP-04590BP

PATIENT
  Age: 89 Year
  Sex: Female

DRUGS (5)
  1. AGGRENOX [Suspect]
     Dosage: PO;
     Route: 048
     Dates: start: 20040305, end: 20040419
  2. NAMEDA [Suspect]
     Indication: DEMENTIA ALZHEIMER'S TYPE
     Dosage: PO;  20 MG (10 MG, 10 MG BID), PO
     Route: 048
     Dates: end: 20040420
  3. NAMEDA [Suspect]
     Indication: DEMENTIA ALZHEIMER'S TYPE
     Dosage: PO;  20 MG (10 MG, 10 MG BID), PO
     Route: 048
     Dates: start: 20040305
  4. LEXAPRO [Concomitant]
  5. ARICEPT [Concomitant]

REACTIONS (4)
  - ASTHENIA [None]
  - COMA [None]
  - HYPOGLYCAEMIA [None]
  - LETHARGY [None]
